FAERS Safety Report 18167668 (Version 1)
Quarter: 2020Q3

REPORT INFORMATION
  Report Type: Spontaneous
  Country: US (occurrence: US)
  Receive Date: 20200818
  Receipt Date: 20200818
  Transmission Date: 20201103
  Serious: No
  Sender: FDA-Public Use
  Company Number: None

PATIENT
  Age: 43 Year
  Sex: Male
  Weight: 113.8 kg

DRUGS (12)
  1. GABAPENTIN. [Concomitant]
     Active Substance: GABAPENTIN
  2. ONDANSETRON [Concomitant]
     Active Substance: ONDANSETRON
  3. PROCHLORPERAZINE. [Concomitant]
     Active Substance: PROCHLORPERAZINE
  4. OXYCODONE HYDROCHLORIDE. [Concomitant]
     Active Substance: OXYCODONE HYDROCHLORIDE
  5. LORAZEPAM. [Concomitant]
     Active Substance: LORAZEPAM
  6. REVATIO [Concomitant]
     Active Substance: SILDENAFIL CITRATE
  7. FULPHILA [Suspect]
     Active Substance: PEGFILGRASTIM-JMDB
     Indication: APPENDIX CANCER
     Dosage: ?          OTHER FREQUENCY:EVERY 14 DAYS;?
     Route: 058
     Dates: start: 20200310, end: 20200818
  8. DEXAMETHASONE. [Concomitant]
     Active Substance: DEXAMETHASONE
  9. NICODERM CQ [Concomitant]
     Active Substance: NICOTINE
  10. ACETAMINOPHEN. [Concomitant]
     Active Substance: ACETAMINOPHEN
  11. MELATONIN [Concomitant]
     Active Substance: MELATONIN
  12. VENTOLIN HFA [Concomitant]
     Active Substance: ALBUTEROL SULFATE

REACTIONS (1)
  - Hospice care [None]

NARRATIVE: CASE EVENT DATE: 20200818
